FAERS Safety Report 4311939-X (Version None)
Quarter: 2004Q1

REPORT INFORMATION
  Report Type: 
  Country: None (occurrence: None)
  Receive Date: 20040303
  Receipt Date: 20040120
  Transmission Date: 20041129
  Serious: Yes (Other)
  Sender: FDA-Public Use
  Company Number: ZA-JNJFOC-20031202196

PATIENT
  Age: 30 Year
  Sex: Male

DRUGS (3)
  1. RISPERDAL [Suspect]
     Indication: BIPOLAR DISORDER
     Dosage: ORAL
     Route: 048
     Dates: end: 20030601
  2. OLANZAPINE [Suspect]
     Indication: BIPOLAR DISORDER
     Dosage: 15 MG, 1 IN 1 DAY ORAL
     Route: 048
     Dates: start: 20011112, end: 20021223
  3. LAMOTRIGINE [Concomitant]

REACTIONS (7)
  - ASTHENOPIA [None]
  - ASTIGMATISM [None]
  - COLOUR BLINDNESS [None]
  - DIPLOPIA [None]
  - DRUG INTERACTION [None]
  - VISION BLURRED [None]
  - VISUAL DISTURBANCE [None]
